FAERS Safety Report 22225901 (Version 2)
Quarter: 2023Q2

REPORT INFORMATION
  Report Type: Report from Study
  Country: US (occurrence: US)
  Receive Date: 20230419
  Receipt Date: 20230420
  Transmission Date: 20230722
  Serious: Yes (Other)
  Sender: FDA-Public Use
  Company Number: US-ABBVIE-4731139

PATIENT
  Age: 67 Year
  Sex: Male
  Weight: 67 kg

DRUGS (21)
  1. VENETOCLAX [Suspect]
     Active Substance: VENETOCLAX
     Indication: Chronic lymphocytic leukaemia recurrent
     Dosage: 10 MG-50 MG-100 MG TABLETS IN A DOSE PACK, TAKE AS DIRECTED PO 10MG DAILYX7,
     Route: 048
     Dates: start: 20180719
  2. VENETOCLAX [Suspect]
     Active Substance: VENETOCLAX
     Indication: Chronic lymphocytic leukaemia recurrent
     Dosage: PO (400 QD) D1-28 Q28D V3.O
     Route: 048
  3. VENETOCLAX [Suspect]
     Active Substance: VENETOCLAX
     Indication: Chronic lymphocytic leukaemia recurrent
     Route: 048
  4. VENETOCLAX [Suspect]
     Active Substance: VENETOCLAX
     Indication: Chronic lymphocytic leukaemia recurrent
     Dosage: PO(RAMP-UP) Q35D X 1 F/B
     Route: 048
     Dates: start: 20200713
  5. VENETOCLAX [Suspect]
     Active Substance: VENETOCLAX
     Indication: Chronic lymphocytic leukaemia recurrent
     Dosage: 10 MG-50 MG-100 MG TABLETS IN A DOSE PACK, 100MG DAILY X7
     Route: 048
  6. VENETOCLAX [Suspect]
     Active Substance: VENETOCLAX
     Indication: Chronic lymphocytic leukaemia recurrent
     Dosage: 10 MG-50 MG-100 MG TABLETS IN A DOSE PACK,50MG DAILY X7
     Route: 048
  7. FLUDARABINE [Concomitant]
     Active Substance: FLUDARABINE PHOSPHATE
     Indication: Product used for unknown indication
     Dates: start: 2012
  8. BETAMETHASONE VALERATE [Concomitant]
     Active Substance: BETAMETHASONE VALERATE
     Indication: Product used for unknown indication
     Dosage: APPLY THIN LAYER TO AFFECTED AREAS ONCE DAILY?FORM STRENGTH: 0.1 PERCENT
     Route: 061
  9. CYCLOPHOSPHAMIDE [Concomitant]
     Active Substance: CYCLOPHOSPHAMIDE
     Indication: Product used for unknown indication
     Dates: start: 2012
  10. SYMBICORT [Concomitant]
     Active Substance: BUDESONIDE\FORMOTEROL FUMARATE DIHYDRATE
     Indication: Product used for unknown indication
     Dosage: 160 MCG-4.5 MCG/ACTUATION HFA AEROSOL INHALER, 2 PUFFS BID
     Route: 055
  11. ALBUTEROL SULFATE [Concomitant]
     Active Substance: ALBUTEROL SULFATE
     Indication: Product used for unknown indication
     Dosage: TIME INTERVAL: 0.33333333 DAYS: 2.5 MG/3 ML (0.083 %) SOLUTION FOR NEBULIZATION, INHALE CONTENTS ...
     Route: 055
  12. MUPIROCIN [Concomitant]
     Active Substance: MUPIROCIN
     Indication: Product used for unknown indication
     Dosage: FORM STRENGTH: 2 PERCENT
     Route: 061
  13. DEXAMETHASONE [Concomitant]
     Active Substance: DEXAMETHASONE
     Indication: Product used for unknown indication
     Dosage: TIME INTERVAL: 0.33333333 DAYS: 4 MG TABLET : ONE TAB ORALLY WITH FOOD 3 TIMES DAILY?FORM STRENGT...
     Route: 048
  14. NYSTATIN [Concomitant]
     Active Substance: NYSTATIN
     Indication: Product used for unknown indication
     Dosage: TIME INTERVAL: 0.33333333 DAYS: 100,000 UNIT/ML ORAL SUSPENSION,10 ML SWISH AND SPIT 3 TIMES A DAY
     Route: 048
  15. GABAPENTIN [Concomitant]
     Active Substance: GABAPENTIN
     Indication: Product used for unknown indication
     Dosage: TIME INTERVAL: 0.33333333 DAYS: FORM STRENGTH: 400 MILLIGRAM
     Route: 048
  16. IBRUTINIB [Concomitant]
     Active Substance: IBRUTINIB
     Indication: Product used for unknown indication
     Route: 048
  17. RITUXAN [Suspect]
     Active Substance: RITUXIMAB
     Indication: Chronic lymphocytic leukaemia recurrent
     Dosage: 375 AND 500, D1 Q28D X 1 AND D1 Q28D X 5
     Dates: start: 20200611, end: 20201109
  18. Immune Globulin/Privigen [Concomitant]
     Indication: Product used for unknown indication
     Dosage: D1 Q5 WEEKS 9/26/22 V2.5?400 MILLIGRAM(S)/KILOGRAM
     Dates: start: 20200916
  19. MINOCYCLINE [Concomitant]
     Active Substance: MINOCYCLINE HYDROCHLORIDE
     Indication: Product used for unknown indication
     Dosage: TAKE 1 CAPSULE BY MOUTH TWICE DAILY? FORM STRENGTH: 100 MILLIGRAM
     Route: 048
  20. MINERALS\VITAMINS [Concomitant]
     Active Substance: MINERALS\VITAMINS
     Indication: Product used for unknown indication
     Dosage: TIME INTERVAL: 0.33333333 DAYS: 400 MCG-250 MCG CHEWABLE TABLET, ONE TAB ORALLY WITH FOOD THREE T...
     Route: 048
  21. METOPROLOL SUCCINATE [Concomitant]
     Active Substance: METOPROLOL SUCCINATE
     Indication: Product used for unknown indication
     Dosage: 25 MG TABLET.EXTENDED RELEASE 24 HR, 1 TABLET BY MOUTH DAILY?FORM STRENGTH: 25 MILLIGRAM
     Route: 048

REACTIONS (9)
  - Herpes zoster [Unknown]
  - Hypoaesthesia [Unknown]
  - Malnutrition [Unknown]
  - Tinnitus [Unknown]
  - Fatigue [Unknown]
  - Neutropenia [Unknown]
  - Embolism venous [Unknown]
  - Subacute inflammatory demyelinating polyneuropathy [Unknown]
  - Weight decreased [Unknown]

NARRATIVE: CASE EVENT DATE: 20200611
